FAERS Safety Report 10236368 (Version 1)
Quarter: 2014Q2

REPORT INFORMATION
  Report Type: Spontaneous
  Country: AU (occurrence: AU)
  Receive Date: 20140613
  Receipt Date: 20140613
  Transmission Date: 20141212
  Serious: Yes (Life-Threatening)
  Sender: FDA-Public Use
  Company Number: AU-WATSON-2014-13385

PATIENT
  Sex: 0

DRUGS (2)
  1. PROPRANOLOL (UNKNOWN) [Suspect]
     Indication: HAEMANGIOMA
     Dosage: 0.5 MG/KG, BID
     Route: 065
  2. PROPRANOLOL (UNKNOWN) [Suspect]
     Dosage: 0.25 MG/KG, UNK
     Route: 065

REACTIONS (3)
  - Apnoea neonatal [Recovered/Resolved]
  - Floppy infant [Recovered/Resolved]
  - Heart rate decreased [Recovered/Resolved]
